FAERS Safety Report 21956859 (Version 2)
Quarter: 2023Q1

REPORT INFORMATION
  Report Type: Spontaneous
  Country: GB (occurrence: GB)
  Receive Date: 20230206
  Receipt Date: 20230217
  Transmission Date: 20230417
  Serious: Yes (Other)
  Sender: FDA-Public Use
  Company Number: GB-MHRA-MED-202301220828023940-KCJGP

PATIENT
  Age: 62 Year
  Sex: Female

DRUGS (3)
  1. CIPROFLOXACIN [Suspect]
     Active Substance: CIPROFLOXACIN
     Indication: Lower respiratory tract infection
     Dosage: CAN^T REMEMBER DOSE; ;
     Route: 048
     Dates: start: 20221212, end: 20221213
  2. FLUOCINOLONE [Suspect]
     Active Substance: FLUOCINOLONE
     Indication: Lower respiratory tract infection
     Dosage: DOSE NOT KNOWN; ;
     Route: 048
     Dates: start: 20221212, end: 20221213
  3. PREDNISONE [Concomitant]
     Active Substance: PREDNISONE
     Indication: Lower respiratory tract infection
     Dates: start: 20221212, end: 20221213

REACTIONS (10)
  - Panic attack [Not Recovered/Not Resolved]
  - Thirst [Unknown]
  - Thinking abnormal [Unknown]
  - Fear [Unknown]
  - Urine output decreased [Unknown]
  - Crying [Unknown]
  - Depressed mood [Unknown]
  - Agitation [Unknown]
  - Anxiety [Recovering/Resolving]
  - Decreased appetite [Unknown]

NARRATIVE: CASE EVENT DATE: 20221213
